FAERS Safety Report 12537711 (Version 1)
Quarter: 2016Q3

REPORT INFORMATION
  Report Type: Spontaneous
  Country: IT (occurrence: IT)
  Receive Date: 20160707
  Receipt Date: 20160707
  Transmission Date: 20161109
  Serious: Yes (Other)
  Sender: FDA-Public Use
  Company Number: IT-MYLANLABS-2016M1027924

PATIENT

DRUGS (3)
  1. ATAZANAVIR/RITONAVIR [Suspect]
     Active Substance: ATAZANAVIR\RITONAVIR
     Indication: HIV INFECTION
     Dosage: 300/100MG ONCE DAILY
     Route: 065
     Dates: start: 2010
  2. ORLISTAT [Interacting]
     Active Substance: ORLISTAT
     Indication: WEIGHT CONTROL
     Dosage: THREE 60MG TABLETS DAILY AT EACH MEAL
     Route: 065
     Dates: start: 2015, end: 2015
  3. EMTRICITABINE W/TENOFOVIR [Concomitant]
     Active Substance: EMTRICITABINE\TENOFOVIR DISOPROXIL
     Indication: HIV INFECTION
     Route: 065
     Dates: start: 2010

REACTIONS (2)
  - Drug interaction [Recovered/Resolved]
  - Virologic failure [Recovered/Resolved]

NARRATIVE: CASE EVENT DATE: 2015
